FAERS Safety Report 13892934 (Version 1)
Quarter: 2017Q3

REPORT INFORMATION
  Report Type: Spontaneous
  Country: US (occurrence: US)
  Receive Date: 20170822
  Receipt Date: 20170822
  Transmission Date: 20171127
  Serious: No
  Sender: FDA-Public Use
  Company Number: US-ROCHE-1078932

PATIENT
  Sex: Female

DRUGS (1)
  1. HERCEPTIN [Suspect]
     Active Substance: TRASTUZUMAB
     Indication: BREAST CANCER
     Dosage: LAST DOSE TAKEN ON 08-JUN-2012.
     Route: 065
     Dates: start: 20120319

REACTIONS (4)
  - Pain in extremity [Unknown]
  - Rash [Unknown]
  - Skin exfoliation [Unknown]
  - Dry skin [Unknown]
